FAERS Safety Report 23492712 (Version 1)
Quarter: 2024Q1

REPORT INFORMATION
  Report Type: Report from Study
  Country: US (occurrence: None)
  Receive Date: 20240207
  Receipt Date: 20240207
  Transmission Date: 20240410
  Serious: Yes (Death)
  Sender: FDA-Public Use
  Company Number: 2024A028480

PATIENT
  Sex: Male
  Weight: 73 kg

DRUGS (14)
  1. CALQUENCE [Suspect]
     Active Substance: ACALABRUTINIB
     Indication: Chronic lymphocytic leukaemia
     Route: 048
  2. ALLOPURINOL [Concomitant]
     Active Substance: ALLOPURINOL
  3. ENALAPRIL [Concomitant]
     Active Substance: ENALAPRIL
  4. FINASTERIDE [Concomitant]
     Active Substance: FINASTERIDE
  5. FISH OIL [Concomitant]
     Active Substance: FISH OIL
  6. HYDRALAZINE [Concomitant]
     Active Substance: HYDRALAZINE HYDROCHLORIDE
  7. IMBRUVICA [Concomitant]
     Active Substance: IBRUTINIB
  8. NATEGLINIDE [Concomitant]
     Active Substance: NATEGLINIDE
  9. PREDNISONE [Concomitant]
     Active Substance: PREDNISONE
  10. SIMVASTATIN [Concomitant]
     Active Substance: SIMVASTATIN
  11. TAMSULOSIN [Concomitant]
     Active Substance: TAMSULOSIN
  12. TOPAMAX [Concomitant]
     Active Substance: TOPIRAMATE
  13. TRIAMTERINE-HYDROCHLORATHIAZID [Concomitant]
  14. VENCLEXTA [Concomitant]
     Active Substance: VENETOCLAX

REACTIONS (1)
  - Death [Fatal]
